FAERS Safety Report 5958620-9 (Version None)
Quarter: 2008Q4

REPORT INFORMATION
  Report Type: 
  Country: None (occurrence: None)
  Receive Date: 20081119
  Receipt Date: 20081107
  Transmission Date: 20090506
  Serious: Yes (Other)
  Sender: FDA-Public Use
  Company Number: GB-PFIZER INC-2008086738

PATIENT
  Sex: Female
  Weight: 87 kg

DRUGS (3)
  1. AROMASIN [Suspect]
     Indication: BREAST CANCER
     Route: 048
     Dates: start: 20080827, end: 20081007
  2. SANDOSTATIN [Concomitant]
  3. SIMVASTATIN [Concomitant]
     Indication: AORTIC VALVE DISEASE
     Dosage: DAILY DOSE:10MG
     Route: 048

REACTIONS (1)
  - HEPATIC ENZYME INCREASED [None]
